FAERS Safety Report 11510005 (Version 1)
Quarter: 2015Q3

REPORT INFORMATION
  Report Type: Spontaneous
  Country: US (occurrence: US)
  Receive Date: 20150915
  Receipt Date: 20150915
  Transmission Date: 20151125
  Serious: No
  Sender: FDA-Public Use
  Company Number: US-JNJFOC-20150813020

PATIENT
  Age: 74 Year
  Sex: Female
  Weight: 62.6 kg

DRUGS (3)
  1. MENS ROGAINE EXTRA STRENGTH [Suspect]
     Active Substance: MINOXIDIL
     Route: 061
  2. MENS ROGAINE EXTRA STRENGTH [Suspect]
     Active Substance: MINOXIDIL
     Indication: ALOPECIA
     Dosage: ONCE DAILY ON THE CROWN AND SIDES AND TWICE DAILY ON THE FRONT HAIR LINE
     Route: 061
  3. ALDACTONE [Concomitant]
     Active Substance: SPIRONOLACTONE
     Indication: ALOPECIA
     Route: 065

REACTIONS (3)
  - Product quality issue [Unknown]
  - Wrong patient received medication [Not Recovered/Not Resolved]
  - Hair texture abnormal [Not Recovered/Not Resolved]
